FAERS Safety Report 7007922-6 (Version None)
Quarter: 2010Q3

REPORT INFORMATION
  Report Type: 
  Country: None (occurrence: None)
  Receive Date: 20100922
  Receipt Date: 20100910
  Transmission Date: 20110219
  Serious: Yes (Death, Other)
  Sender: FDA-Public Use
  Company Number: US-PFIZER INC-2010102307

PATIENT
  Sex: Male

DRUGS (3)
  1. LYRICA [Suspect]
     Indication: TARSAL TUNNEL SYNDROME
     Dosage: 150 MG, 2X/DAY
  2. ULTRAM [Concomitant]
     Dosage: 50MG, EVERY 4 TO 6 HOURS,
     Route: 048
  3. PERCOCET [Concomitant]
     Dosage: 5/325 MG, EVERY 4 TO 6 HOURS,
     Route: 048

REACTIONS (2)
  - COMPLETED SUICIDE [None]
  - MAJOR DEPRESSION [None]
